FAERS Safety Report 14733046 (Version 1)
Quarter: 2018Q2

REPORT INFORMATION
  Report Type: Spontaneous
  Country: US (occurrence: US)
  Receive Date: 20180409
  Receipt Date: 20180409
  Transmission Date: 20180711
  Serious: No
  Sender: FDA-Public Use
  Company Number: US-AUROBINDO-AUR-APU-2017-34880

PATIENT
  Age: 26 Year
  Sex: Male

DRUGS (1)
  1. TRIMETHOPRIM+SULFAMETHOXAZOLE [Suspect]
     Active Substance: SULFAMETHOXAZOLE\TRIMETHOPRIM
     Indication: ANTIBIOTIC THERAPY
     Dosage: TWO TIMES A DAY
     Route: 065
     Dates: start: 20170519

REACTIONS (1)
  - False positive investigation result [Not Recovered/Not Resolved]

NARRATIVE: CASE EVENT DATE: 20170525
